FAERS Safety Report 9842500 (Version 1)
Quarter: 2013Q4

REPORT INFORMATION
  Report Type: Spontaneous
  Country: US (occurrence: None)
  Receive Date: 20131219
  Receipt Date: 20131219
  Transmission Date: 20140711
  Serious: Yes (Other)
  Sender: FDA-Public Use
  Company Number: 163-20785-13012316

PATIENT
  Age: 78 Year
  Sex: Male

DRUGS (9)
  1. THALOMID (THALIDOMIDE) (50 MILLIGRAM, CAPSULES) [Suspect]
     Indication: MYELOFIBROSIS
     Dosage: 50 MG, 28 IN 28 D, PO
     Route: 048
     Dates: start: 20121219
  2. PREDNISONE [Suspect]
     Indication: PRODUCT USED FOR UNKNOWN INDICATION
     Dosage: 25 MG, 3 IN 3 D, UNK
  3. METOPROLOL TARTRATE (METOPROLOL TARTRATE) (100 MILLIGRAM, TABLETS) [Concomitant]
  4. MELOXICAM (MELOXICAM) (7.5 MILLIGRAM, TABLETS) [Concomitant]
  5. OMEPRAZOLE DR (20 MLLIGRAM, CAPSULES) [Concomitant]
  6. ASPIRIN EC (81 MILLIGRAM, TABLETS) [Concomitant]
  7. VITAMIN D (ERGOCALCIFEROL) (UNKNOWN) [Concomitant]
  8. FOLBIC (HEPAGRISEVIT FORTE-N TABLET) (TABLETS) [Concomitant]
  9. PV VITAMIN D3 (CHEWABLE TABLET) [Concomitant]

REACTIONS (9)
  - Heart rate increased [None]
  - Dizziness [None]
  - Chest pain [None]
  - Dyspnoea [None]
  - Headache [None]
  - Ear congestion [None]
  - Visual acuity reduced [None]
  - Musculoskeletal disorder [None]
  - Balance disorder [None]
